FAERS Safety Report 25494828 (Version 1)
Quarter: 2025Q2

REPORT INFORMATION
  Report Type: Spontaneous
  Country: US (occurrence: None)
  Receive Date: 20250630
  Receipt Date: 20250630
  Transmission Date: 20250716
  Serious: Yes (Death)
  Sender: FDA-CTU
  Company Number: None

PATIENT
  Age: 93 Year
  Sex: Female

DRUGS (1)
  1. COLLAGENASE SANTYL [Suspect]
     Active Substance: COLLAGENASE CLOSTRIDIUM HISTOLYTICUM
     Dosage: OTHER QUANTITY : NICKEL THICK LAYER OF THE OINTMENT;?FREQUENCY : DAILY;?
     Route: 061
     Dates: start: 20250605, end: 20250625

REACTIONS (1)
  - Death [None]

NARRATIVE: CASE EVENT DATE: 20250625
